FAERS Safety Report 12916360 (Version 1)
Quarter: 2016Q4

REPORT INFORMATION
  Report Type: Spontaneous
  Country: US (occurrence: US)
  Receive Date: 20161103
  Receipt Date: 20161103
  Transmission Date: 20170207
  Serious: Yes (Hospitalization, Other)
  Sender: FDA-Public Use
  Company Number: None

PATIENT
  Age: 73 Year
  Sex: Male
  Weight: 89.1 kg

DRUGS (4)
  1. HZT [Concomitant]
  2. ALEVE [Concomitant]
     Active Substance: NAPROXEN SODIUM
  3. LORZONE [Suspect]
     Active Substance: CHLORZOXAZONE
     Indication: FLANK PAIN
     Dosage: ?          QUANTITY:8 TABLET(S);?
     Route: 048
     Dates: start: 20160903, end: 20160904
  4. AZOR [Concomitant]
     Active Substance: AMLODIPINE BESYLATE\OLMESARTAN MEDOXOMIL

REACTIONS (7)
  - Discomfort [None]
  - Coordination abnormal [None]
  - Nausea [None]
  - Feeling abnormal [None]
  - Disorientation [None]
  - Dizziness [None]
  - Balance disorder [None]

NARRATIVE: CASE EVENT DATE: 20160904
